FAERS Safety Report 9013649 (Version 1)
Quarter: 2013Q1

REPORT INFORMATION
  Report Type: Spontaneous
  Country: US (occurrence: None)
  Receive Date: 20130109
  Receipt Date: 20130109
  Transmission Date: 20140127
  Serious: Yes (Life-Threatening, Hospitalization, Other)
  Sender: FDA-Public Use
  Company Number: None

PATIENT
  Age: 33 Year
  Sex: Male
  Weight: 83.92 kg

DRUGS (1)
  1. FENTANYL TRANSDERMAL SYSTEM [Suspect]
     Indication: CANCER PAIN
     Route: 062
     Dates: start: 20121218, end: 20121221

REACTIONS (11)
  - Lethargy [None]
  - Yellow skin [None]
  - Disorientation [None]
  - Speech disorder [None]
  - Amnesia [None]
  - Convulsion [None]
  - Liver disorder [None]
  - Ocular icterus [None]
  - Dysphagia [None]
  - Pulmonary oedema [None]
  - Pneumonia [None]
